FAERS Safety Report 14527113 (Version 1)
Quarter: 2018Q1

REPORT INFORMATION
  Report Type: Spontaneous
  Country: US (occurrence: US)
  Receive Date: 20180212
  Receipt Date: 20180212
  Transmission Date: 20180509
  Serious: Yes (Other)
  Sender: FDA-Public Use
  Company Number: None

PATIENT
  Sex: Female
  Weight: 16.65 kg

DRUGS (3)
  1. MIRALAX [Concomitant]
     Active Substance: POLYETHYLENE GLYCOL 3350
  2. OSELTAMIVIR 6 MG/ML SUSPENSION 60 ML [Suspect]
     Active Substance: OSELTAMIVIR
     Indication: INFLUENZA
     Dosage: ?          QUANTITY:1.5 TEASPOON(S);?
     Route: 048
     Dates: start: 20180211, end: 20180212
  3. MULTIVITAMIN [Concomitant]
     Active Substance: VITAMINS

REACTIONS (3)
  - Hallucination [None]
  - Screaming [None]
  - Panic reaction [None]

NARRATIVE: CASE EVENT DATE: 20180211
